FAERS Safety Report 18723786 (Version 1)
Quarter: 2021Q1

REPORT INFORMATION
  Report Type: Spontaneous
  Country: CA (occurrence: CA)
  Receive Date: 20210111
  Receipt Date: 20210111
  Transmission Date: 20210419
  Serious: Yes (Other)
  Sender: FDA-Public Use
  Company Number: CA-ACCORD-213531

PATIENT
  Age: 46 Year
  Sex: Female

DRUGS (5)
  1. CLONAZEPAM. [Concomitant]
     Active Substance: CLONAZEPAM
     Indication: PRODUCT USED FOR UNKNOWN INDICATION
     Route: 065
  2. IMODIUM [Concomitant]
     Active Substance: LOPERAMIDE HYDROCHLORIDE
     Indication: PRODUCT USED FOR UNKNOWN INDICATION
     Route: 065
  3. METHOTREXATE. [Suspect]
     Active Substance: METHOTREXATE
     Indication: PRODUCT USED FOR UNKNOWN INDICATION
     Route: 065
  4. HUMIRA [Suspect]
     Active Substance: ADALIMUMAB
     Indication: CROHN^S DISEASE
     Route: 058
  5. SULFASALAZINE. [Suspect]
     Active Substance: SULFASALAZINE
     Indication: PRODUCT USED FOR UNKNOWN INDICATION
     Route: 065

REACTIONS (41)
  - Drug ineffective [Unknown]
  - Mouth ulceration [Recovered/Resolved]
  - Musculoskeletal discomfort [Recovered/Resolved]
  - Sacroiliitis [Recovered/Resolved]
  - Swelling [Recovered/Resolved]
  - Varicose vein [Recovered/Resolved]
  - Epicondylitis [Recovered/Resolved]
  - Large intestine polyp [Recovered/Resolved]
  - Limb discomfort [Recovered/Resolved]
  - Amputation [Recovered/Resolved]
  - Dermatitis [Recovered/Resolved]
  - Diarrhoea [Recovered/Resolved]
  - Foot deformity [Recovered/Resolved]
  - Pain in extremity [Recovered/Resolved]
  - Stress [Recovered/Resolved]
  - C-reactive protein increased [Recovered/Resolved]
  - Depression [Recovered/Resolved]
  - Drug hypersensitivity [Recovered/Resolved]
  - Back pain [Recovered/Resolved]
  - Congenital knee deformity [Recovered/Resolved]
  - Fatigue [Recovered/Resolved]
  - Gastrointestinal disorder [Recovered/Resolved]
  - Insomnia [Recovered/Resolved]
  - Intervertebral disc space narrowing [Recovered/Resolved]
  - Nausea [Recovered/Resolved]
  - Peripheral pulse decreased [Recovered/Resolved]
  - Immobilisation syndrome [Recovered/Resolved]
  - Osteoarthritis [Recovered/Resolved]
  - Pain [Recovered/Resolved]
  - Abdominal discomfort [Recovered/Resolved]
  - Anxiety [Recovered/Resolved]
  - Bone pain [Recovered/Resolved]
  - Fibromyalgia [Recovered/Resolved]
  - Tenderness [Recovered/Resolved]
  - Acquired claw toe [Recovered/Resolved]
  - Arthralgia [Recovered/Resolved]
  - Bone hypertrophy [Recovered/Resolved]
  - Bursitis [Recovered/Resolved]
  - Joint space narrowing [Recovered/Resolved]
  - Poor quality sleep [Recovered/Resolved]
  - Repetitive strain injury [Recovered/Resolved]
